FAERS Safety Report 14282424 (Version 1)
Quarter: 2017Q4

REPORT INFORMATION
  Report Type: Spontaneous
  Country: CH (occurrence: CH)
  Receive Date: 20171213
  Receipt Date: 20171213
  Transmission Date: 20180321
  Serious: Yes (Other)
  Sender: FDA-Public Use
  Company Number: CH-PFIZER INC-2017523573

PATIENT
  Age: 52 Year
  Sex: Female

DRUGS (4)
  1. AKINETON [Suspect]
     Active Substance: BIPERIDEN HYDROCHLORIDE
     Dosage: 4 MG, 1X/DAY
     Route: 048
     Dates: start: 2014
  2. TEMESTA (LORAZEPAM) [Suspect]
     Active Substance: LORAZEPAM
     Dosage: 1-2 MG/DAY (IN THE EVENING)
     Route: 048
     Dates: start: 2014
  3. ORFIRIL [Suspect]
     Active Substance: VALPROATE SODIUM
     Dosage: 1500 MG, DAILY (600-0-900)
     Route: 048
     Dates: start: 2014
  4. SYCREST [Suspect]
     Active Substance: ASENAPINE MALEATE
     Dosage: 5 MG, 2X/DAY
     Route: 048
     Dates: start: 2014

REACTIONS (1)
  - Dental caries [Not Recovered/Not Resolved]

NARRATIVE: CASE EVENT DATE: 2017
